FAERS Safety Report 15689609 (Version 1)
Quarter: 2018Q4

REPORT INFORMATION
  Report Type: Spontaneous
  Country: US (occurrence: US)
  Receive Date: 20181204
  Receipt Date: 20181204
  Transmission Date: 20190205
  Serious: Yes (Other)
  Sender: FDA-Public Use
  Company Number: None

PATIENT
  Age: 33 Year
  Sex: Female
  Weight: 66.6 kg

DRUGS (1)
  1. DEPO-PROVERA [Suspect]
     Active Substance: MEDROXYPROGESTERONE ACETATE
     Indication: CONTRACEPTION
     Dosage: ?          QUANTITY:1 INJECTION(S);OTHER FREQUENCY:1X EVERY 12 WEEKS;?
     Route: 030
     Dates: start: 20171205, end: 20180817

REACTIONS (10)
  - Weight increased [None]
  - Breast pain [None]
  - Uterine polyp [None]
  - Pain [None]
  - Dizziness [None]
  - Drug ineffective [None]
  - Anxiety [None]
  - Palpitations [None]
  - Iron deficiency anaemia [None]
  - Menorrhagia [None]

NARRATIVE: CASE EVENT DATE: 20180815
